FAERS Safety Report 7867839-1 (Version None)
Quarter: 2011Q4

REPORT INFORMATION
  Report Type: 
  Country: None (occurrence: None)
  Receive Date: 20111028
  Receipt Date: 20111021
  Transmission Date: 20120403
  Serious: Yes (Hospitalization)
  Sender: FDA-Public Use
  Company Number: GR-JNJFOC-20111012265

PATIENT
  Age: 74 Year
  Sex: Female

DRUGS (5)
  1. LONARID [Concomitant]
     Dates: start: 20111018
  2. ZANTAC [Concomitant]
     Dates: start: 20111018
  3. BLOOD AND RELATED PRODUCTS [Concomitant]
  4. RIVAROXABAN [Suspect]
     Indication: THROMBOSIS PROPHYLAXIS
     Route: 048
     Dates: start: 20111018, end: 20111020
  5. CEFUROXIME SODIUM [Concomitant]
     Dates: start: 20111018

REACTIONS (2)
  - THROMBOCYTOPENIA [None]
  - INCISION SITE HAEMORRHAGE [None]
